FAERS Safety Report 7759382-5 (Version None)
Quarter: 2011Q3

REPORT INFORMATION
  Report Type: 
  Country: None (occurrence: None)
  Receive Date: 20110919
  Receipt Date: 20110908
  Transmission Date: 20111222
  Serious: Yes (Other)
  Sender: FDA-Public Use
  Company Number: US-JNJFOC-20110605693

PATIENT
  Sex: Female
  Weight: 127.01 kg

DRUGS (3)
  1. REMICADE [Suspect]
     Indication: PSORIATIC ARTHROPATHY
     Route: 042
     Dates: start: 20080506, end: 20110524
  2. METHOTREXATE [Concomitant]
     Route: 048
     Dates: start: 20030409, end: 20110607
  3. SULFASALAZINE [Concomitant]

REACTIONS (1)
  - LYMPHOMA [None]
